FAERS Safety Report 21495347 (Version 2)
Quarter: 2023Q1

REPORT INFORMATION
  Report Type: Report from Study
  Country: US (occurrence: US)
  Receive Date: 20221022
  Receipt Date: 20230320
  Transmission Date: 20230418
  Serious: No
  Sender: FDA-Public Use
  Company Number: US-ABBVIE-4166697

PATIENT
  Sex: Male

DRUGS (1)
  1. IMBRUVICA [Suspect]
     Active Substance: IBRUTINIB
     Indication: Chronic lymphocytic leukaemia
     Route: 048
     Dates: start: 20220525

REACTIONS (6)
  - Loss of personal independence in daily activities [Unknown]
  - Unevaluable event [Unknown]
  - Diarrhoea [Unknown]
  - Unevaluable event [Unknown]
  - Fatigue [Unknown]
  - White blood cell count decreased [Unknown]
